FAERS Safety Report 16181422 (Version 2)
Quarter: 2019Q2

REPORT INFORMATION
  Report Type: Spontaneous
  Country: US (occurrence: US)
  Receive Date: 20190410
  Receipt Date: 20190410
  Transmission Date: 20190711
  Serious: Yes (Hospitalization)
  Sender: FDA-Public Use
  Company Number: US-CELGENEUS-USA-20190401375

PATIENT
  Age: 82 Year
  Sex: Female

DRUGS (3)
  1. POMALYST [Suspect]
     Active Substance: POMALIDOMIDE
     Indication: PLASMA CELL LEUKAEMIA
     Dosage: 3 MILLIGRAM
     Route: 048
     Dates: start: 20190131
  2. POMALYST [Suspect]
     Active Substance: POMALIDOMIDE
     Indication: PLASMA CELL MYELOMA
  3. NINLARO [Concomitant]
     Active Substance: IXAZOMIB CITRATE
     Indication: PRODUCT USED FOR UNKNOWN INDICATION
     Dosage: 3 MILLIGRAM
     Route: 065

REACTIONS (5)
  - Syncope [Unknown]
  - Loss of consciousness [Unknown]
  - Asthenia [Unknown]
  - Urinary tract infection [Unknown]
  - Vomiting [Unknown]

NARRATIVE: CASE EVENT DATE: 201903
